FAERS Safety Report 18036012 (Version 1)
Quarter: 2020Q3

REPORT INFORMATION
  Report Type: Spontaneous
  Country: US (occurrence: US)
  Receive Date: 20200716
  Receipt Date: 20200716
  Transmission Date: 20201103
  Serious: Yes (Life-Threatening)
  Sender: FDA-Public Use
  Company Number: None

PATIENT
  Age: 64 Year
  Sex: Male

DRUGS (1)
  1. NITROSTAT [Suspect]
     Active Substance: NITROGLYCERIN
     Indication: ANGINA PECTORIS
     Route: 060
     Dates: start: 20200701, end: 20200702

REACTIONS (5)
  - Hypotension [None]
  - Nausea [None]
  - Unresponsive to stimuli [None]
  - Vomiting [None]
  - Bradycardia [None]

NARRATIVE: CASE EVENT DATE: 20200702
